FAERS Safety Report 13152857 (Version 8)
Quarter: 2017Q4

REPORT INFORMATION
  Report Type: Spontaneous
  Country: JP (occurrence: JP)
  Receive Date: 20170126
  Receipt Date: 20171118
  Transmission Date: 20180320
  Serious: Yes (Death, Other)
  Sender: FDA-Public Use
  Company Number: JP-ROCHE-1884698

PATIENT
  Age: 55 Year
  Sex: Female
  Weight: 53 kg

DRUGS (8)
  1. PREDONINE [Suspect]
     Active Substance: PREDNISOLONE
     Indication: SYSTEMIC LUPUS ERYTHEMATOSUS
     Route: 065
     Dates: start: 20161221
  2. PREDONINE [Suspect]
     Active Substance: PREDNISOLONE
     Indication: SYSTEMIC LUPUS ERYTHEMATOSUS
     Route: 065
     Dates: start: 1997
  3. PREDONINE [Suspect]
     Active Substance: PREDNISOLONE
     Dosage: 6 COURSES?60 MG/DAY
     Route: 065
     Dates: start: 2017
  4. CELLCEPT [Suspect]
     Active Substance: MYCOPHENOLATE MOFETIL\MYCOPHENOLATE MOFETIL HYDROCHLORIDE
     Indication: LUPUS NEPHRITIS
     Dosage: 500 MG/DAY
     Route: 048
     Dates: start: 20161221, end: 20170105
  5. CELLCEPT [Suspect]
     Active Substance: MYCOPHENOLATE MOFETIL\MYCOPHENOLATE MOFETIL HYDROCHLORIDE
     Indication: LUPUS NEPHRITIS
     Route: 048
     Dates: start: 20170105, end: 20170120
  6. PROGRAF [Suspect]
     Active Substance: TACROLIMUS\TACROLIMUS ANHYDROUS
     Route: 048
  7. PREDONINE [Suspect]
     Active Substance: PREDNISOLONE
     Indication: SYSTEMIC LUPUS ERYTHEMATOSUS
     Route: 065
     Dates: start: 20170105
  8. PROGRAF [Suspect]
     Active Substance: TACROLIMUS\TACROLIMUS ANHYDROUS
     Indication: LUPUS NEPHRITIS
     Route: 048
     Dates: start: 2011

REACTIONS (7)
  - Organising pneumonia [Not Recovered/Not Resolved]
  - Histiocytosis haematophagic [Unknown]
  - Cholangitis acute [Unknown]
  - Bile duct obstruction [Unknown]
  - Liver disorder [Unknown]
  - Acute respiratory distress syndrome [Unknown]
  - Varicella [Fatal]

NARRATIVE: CASE EVENT DATE: 20170114
